FAERS Safety Report 6265409-2 (Version None)
Quarter: 2009Q3

REPORT INFORMATION
  Report Type: 
  Country: None (occurrence: None)
  Receive Date: 20090709
  Receipt Date: 20090625
  Transmission Date: 20100115
  Serious: Yes (Hospitalization)
  Sender: FDA-Public Use
  Company Number: CO-JNJFOC-20090609518

PATIENT
  Age: 66 Year
  Sex: 0

DRUGS (1)
  1. DACOGEN        (DECITABINE) LYOPHILIZIED POWDER [Suspect]
     Indication: MYELODYSPLASTIC SYNDROME
     Dosage: CYCLE 1 INTRAVENOUS
     Route: 042
     Dates: start: 20080501

REACTIONS (3)
  - BRONCHOPULMONARY ASPERGILLOSIS [None]
  - HAEMATURIA [None]
  - SERUM FERRITIN DECREASED [None]
